FAERS Safety Report 13897759 (Version 3)
Quarter: 2017Q4

REPORT INFORMATION
  Report Type: Spontaneous
  Country: US (occurrence: US)
  Receive Date: 20170823
  Receipt Date: 20171130
  Transmission Date: 20180320
  Serious: No
  Sender: FDA-Public Use
  Company Number: US-PFIZER INC-2017362816

PATIENT
  Age: 69 Year
  Sex: Female
  Weight: 59.87 kg

DRUGS (4)
  1. ADVIL [Suspect]
     Active Substance: IBUPROFEN
     Indication: PAIN
  2. ADVIL [Suspect]
     Active Substance: IBUPROFEN
     Indication: HEADACHE
     Dosage: TOOK PROBABLY 2 OF THEM AT ONCE
  3. ADVIL [Suspect]
     Active Substance: IBUPROFEN
     Indication: ARTHRITIS
  4. ADVIL [Suspect]
     Active Substance: IBUPROFEN
     Indication: INFLAMMATION

REACTIONS (5)
  - Product taste abnormal [Unknown]
  - Product physical issue [Unknown]
  - Dysgeusia [Unknown]
  - Tongue discomfort [Unknown]
  - Poor quality drug administered [Unknown]
